FAERS Safety Report 5215701-5 (Version None)
Quarter: 2007Q1

REPORT INFORMATION
  Report Type: 
  Country: None (occurrence: None)
  Receive Date: 20070117
  Receipt Date: 20070111
  Transmission Date: 20070707
  Serious: Yes (Hospitalization)
  Sender: FDA-Public Use
  Company Number: ESWYE094506OCT04

PATIENT
  Age: 69 Year
  Sex: Male

DRUGS (64)
  1. RAPAMUNE [Suspect]
     Indication: PROPHYLAXIS AGAINST TRANSPLANT REJECTION
     Dosage: 6 MG 1X PER 1 DAY ORAL
     Route: 048
     Dates: start: 20040717, end: 20040929
  2. PREDNISONE TAB [Concomitant]
  3. CELLCEPT [Concomitant]
  4. ATORVASTATIN CALCIUM [Concomitant]
  5. OMEPRAZOLE [Concomitant]
  6. OMEPRAZOLE [Concomitant]
  7. MASTICAL (CALCIUM CARBONATE) [Concomitant]
  8. ROCALTROL [Concomitant]
  9. ADALAT OROS (NIFEDIPINE) [Concomitant]
  10. SEPTRIN FORTE (SULFAMETHOXAZOLE/TRIMETHOPRIM) [Concomitant]
  11. SIMULECT [Concomitant]
  12. LEXATIN (BROMAZEPAM) [Concomitant]
  13. TOBRAMYCIN SULFATE [Concomitant]
  14. AMPICILLIN [Concomitant]
  15. CLOXACILLIN BENZATHINE [Concomitant]
  16. PRIMPERAN TAB [Concomitant]
  17. PRIMPERAN TAB [Concomitant]
  18. PRIMPERAN TAB [Concomitant]
  19. NOLOTIL /SPA/ (METAMIZOLE MAGNESIUM) [Concomitant]
  20. HUMALOG [Concomitant]
  21. CALCIUM GLUCONATE [Concomitant]
  22. FORTAM (CEFTAZIDIME) [Concomitant]
  23. FORTAM (CEFTAZIDIME) [Concomitant]
  24. TARGOCID [Concomitant]
  25. TARGOCID [Concomitant]
  26. TARGOCID [Concomitant]
  27. CEFUROXIME AXETIL [Concomitant]
  28. MANNITOL [Concomitant]
  29. FUROSEMIDE [Concomitant]
  30. FUROSEMIDE [Concomitant]
  31. FUROSEMIDE [Concomitant]
  32. FUROSEMIDE [Concomitant]
  33. FUROSEMIDE [Concomitant]
  34. DOPAMINE HCL [Concomitant]
  35. SODIUM BICARBONATE IN PLASTIC CONTAINER [Concomitant]
  36. SODIUM BICARBONATE IN PLASTIC CONTAINER [Concomitant]
  37. SODIUM BICARBONATE IN PLASTIC CONTAINER [Concomitant]
  38. SODIUM BICARBONATE IN PLASTIC CONTAINER [Concomitant]
  39. PROPACETAMOL (PROPACETAMOL) [Concomitant]
  40. POTASSIUM CHLORIDE [Concomitant]
  41. POTASSIUM CHLORIDE [Concomitant]
  42. TERMALGIN (PARACETAMOL) [Concomitant]
  43. BOI K (POTASSIUM ASCORBATE) [Concomitant]
  44. MYCOSTATIN [Concomitant]
  45. MYCOSTATIN [Concomitant]
  46. CARDURA [Concomitant]
  47. TAVANIC (LEVOFLOXACIN) [Concomitant]
  48. ALBUMIN (HUMAN) [Concomitant]
  49. ALBUMIN (HUMAN) [Concomitant]
  50. POTASSIUM (POTASSIUM) [Concomitant]
  51. PERFALGAN (PARACETAMOL) [Concomitant]
  52. TAZOCEL (PIPERACILLIN/TAZOBACTAM) [Concomitant]
  53. ALMAX (ALMAGATE) [Concomitant]
  54. INSULIN [Concomitant]
  55. CARDURA [Concomitant]
  56. BUSCAPINA (HYOSCINE BUTYLBROMIDE) [Concomitant]
  57. BUSCAPINA (HYOSCINE BUTYLBROMIDE) [Concomitant]
  58. DIFLUCAN [Concomitant]
  59. IMMUNE GLOBULIN INTRAVENOUS (HUMAN) [Concomitant]
  60. GANCICLOVIR [Concomitant]
  61. SOLTRIM (SULFAMETHOXAZOLE/TRIMETHOPRIM) [Concomitant]
  62. SEPTRA [Concomitant]
  63. ZANTAC [Concomitant]
  64. CANCIDAS [Concomitant]

REACTIONS (10)
  - BLOOD LACTATE DEHYDROGENASE INCREASED [None]
  - GASTROENTERITIS [None]
  - HAEMOGLOBIN DECREASED [None]
  - KIDNEY TRANSPLANT REJECTION [None]
  - MULTI-ORGAN FAILURE [None]
  - NEPHROPATHY TOXIC [None]
  - PNEUMONIA [None]
  - SEPSIS [None]
  - SHOCK [None]
  - THROMBOTIC MICROANGIOPATHY [None]
